FAERS Safety Report 7182583-4 (Version None)
Quarter: 2010Q4

REPORT INFORMATION
  Report Type: 
  Country: None (occurrence: None)
  Receive Date: 20101221
  Receipt Date: 20100514
  Transmission Date: 20110411
  Serious: No
  Sender: FDA-Public Use
  Company Number: US-AMGEN-TCS412721

PATIENT

DRUGS (2)
  1. ENBREL [Suspect]
     Indication: RHEUMATOID ARTHRITIS
     Dosage: 50 MG, UNK
     Route: 058
     Dates: start: 20060727
  2. AZATHIOPRINE [Concomitant]
     Dosage: UNK UNK, UNK

REACTIONS (13)
  - ABDOMINAL DISTENSION [None]
  - CARPAL TUNNEL SYNDROME [None]
  - CONTUSION [None]
  - INJECTION SITE HAEMATOMA [None]
  - INJECTION SITE INDURATION [None]
  - INJECTION SITE MASS [None]
  - INTERVERTEBRAL DISC PROTRUSION [None]
  - JOINT SURGERY [None]
  - NECK MASS [None]
  - PAIN IN EXTREMITY [None]
  - POST PROCEDURAL INFECTION [None]
  - RHEUMATOID ARTHRITIS [None]
  - SURGERY [None]
